FAERS Safety Report 8132067-1 (Version None)
Quarter: 2012Q1

REPORT INFORMATION
  Report Type: 
  Country: None (occurrence: None)
  Receive Date: 20120213
  Receipt Date: 20120207
  Transmission Date: 20120608
  Serious: Yes (Hospitalization, Other)
  Sender: FDA-Public Use
  Company Number: US-PFIZER INC-2011285022

PATIENT
  Sex: Female
  Weight: 68.027 kg

DRUGS (3)
  1. KLONOPIN [Concomitant]
     Indication: ANXIETY
     Dosage: UNK
  2. PRISTIQ [Suspect]
     Indication: MAJOR DEPRESSION
     Dosage: 50 MG, UNK
     Dates: start: 20110101
  3. LITHIUM CARBONATE [Suspect]
     Indication: MAJOR DEPRESSION
     Dosage: 450 MG, 1X/DAY

REACTIONS (6)
  - FEELING ABNORMAL [None]
  - DRUG INEFFECTIVE [None]
  - DEPRESSION [None]
  - DISTURBANCE IN ATTENTION [None]
  - PSYCHIATRIC SYMPTOM [None]
  - FATIGUE [None]
